FAERS Safety Report 7720949-1 (Version None)
Quarter: 2011Q3

REPORT INFORMATION
  Report Type: 
  Country: None (occurrence: None)
  Receive Date: 20110831
  Receipt Date: 20110829
  Transmission Date: 20111222
  Serious: Yes (Hospitalization)
  Sender: FDA-Public Use
  Company Number: US-SANOFI-AVENTIS-2011SA055303

PATIENT
  Age: 70 Year
  Sex: Female

DRUGS (8)
  1. AVASTIN [Suspect]
     Indication: UTERINE LEIOMYOSARCOMA
     Dosage: 15/ MG/KG OVER 30-90 MINUTES ON DAY 1
     Route: 042
     Dates: start: 20100101, end: 20100101
  2. DUONEB [Suspect]
     Route: 065
  3. CEFAZOLIN [Suspect]
     Route: 065
  4. DOCETAXEL [Suspect]
     Indication: UTERINE LEIOMYOSARCOMA
     Dosage: 75 MG/M2 OVER 60 MINUTES ON DAY 8
     Route: 041
     Dates: start: 20100101, end: 20100101
  5. FILGRASTIM [Suspect]
     Indication: UTERINE LEIOMYOSARCOMA
     Dosage: 150 MCG/M2 ON DAYS 9-15
     Route: 058
     Dates: start: 20100101, end: 20100101
  6. GEMCITABINE [Suspect]
     Indication: UTERINE LEIOMYOSARCOMA
     Dosage: 900 MG/M2 OVER 90 MIN ON DAYS 1 AND 8
     Route: 042
     Dates: start: 20100101, end: 20100101
  7. NEURONTIN [Suspect]
     Route: 065
  8. SYNTHROID [Suspect]
     Route: 065

REACTIONS (7)
  - HIP FRACTURE [None]
  - SOFT TISSUE INFECTION [None]
  - FEMUR FRACTURE [None]
  - FALL [None]
  - PYREXIA [None]
  - LUNG INFECTION [None]
  - DEVICE RELATED INFECTION [None]
